FAERS Safety Report 5547006-7 (Version None)
Quarter: 2007Q4

REPORT INFORMATION
  Report Type: 
  Country: None (occurrence: None)
  Receive Date: 20071211
  Receipt Date: 20070216
  Transmission Date: 20080405
  Serious: No
  Sender: FDA-Public Use
  Company Number: US-AMGEN-KDL211687

PATIENT
  Sex: Female

DRUGS (6)
  1. ENBREL [Suspect]
     Indication: RHEUMATOID ARTHRITIS
     Route: 058
     Dates: start: 20070105
  2. METHOTREXATE [Concomitant]
     Route: 048
     Dates: start: 20060201
  3. ISOSORBIDE DINITRATE [Concomitant]
  4. NORVASC [Concomitant]
  5. AVAPRO [Concomitant]
  6. ATENOLOL [Concomitant]

REACTIONS (1)
  - BLOOD PRESSURE DECREASED [None]
